FAERS Safety Report 8911925 (Version 1)
Quarter: 2012Q4

REPORT INFORMATION
  Report Type: 
  Country: US (occurrence: US)
  Receive Date: 20121115
  Receipt Date: 20121115
  Transmission Date: 20130627
  Serious: Yes (Life-Threatening, Disabling, Other)
  Sender: FDA-Public Use
  Company Number: US-009507513-1211USA005801

PATIENT
  Age: 62 Year
  Sex: Female

DRUGS (1)
  1. DULERA [Suspect]
     Dosage: UNK
     Route: 055
     Dates: start: 20121111, end: 20121113

REACTIONS (2)
  - Motor dysfunction [Recovered/Resolved]
  - Loss of consciousness [Recovered/Resolved]
